FAERS Safety Report 5827986-2 (Version None)
Quarter: 2008Q3

REPORT INFORMATION
  Report Type: 
  Country: None (occurrence: None)
  Receive Date: 20080728
  Receipt Date: 20080715
  Transmission Date: 20090109
  Serious: Yes (Other)
  Sender: FDA-Public Use
  Company Number: 2008AP001762

PATIENT
  Age: 97 Year
  Sex: Female

DRUGS (1)
  1. AMIODARONE HCL [Suspect]
     Indication: ATRIAL FIBRILLATION

REACTIONS (12)
  - BLOOD THYROID STIMULATING HORMONE DECREASED [None]
  - CARDIAC MURMUR [None]
  - CONDITION AGGRAVATED [None]
  - DYSPNOEA EXERTIONAL [None]
  - HYPONATRAEMIA [None]
  - JUGULAR VEIN DISTENSION [None]
  - OEDEMA PERIPHERAL [None]
  - RALES [None]
  - THYROGLOBULIN INCREASED [None]
  - THYROID DISORDER [None]
  - THYROXINE FREE DECREASED [None]
  - TRI-IODOTHYRONINE DECREASED [None]
